FAERS Safety Report 5939107-6 (Version None)
Quarter: 2008Q4

REPORT INFORMATION
  Report Type: 
  Country: None (occurrence: None)
  Receive Date: 20081103
  Receipt Date: 20081022
  Transmission Date: 20090506
  Serious: Yes (Hospitalization)
  Sender: FDA-Public Use
  Company Number: B0543198A

PATIENT
  Age: 83 Year
  Sex: Female
  Weight: 55 kg

DRUGS (2)
  1. ARIXTRA [Suspect]
     Indication: DRUG USE FOR UNKNOWN INDICATION
     Dosage: 2.5MG PER DAY
     Route: 058
     Dates: start: 20070101, end: 20081018
  2. KARDEGIC [Suspect]
     Route: 048

REACTIONS (9)
  - ABDOMINAL PAIN LOWER [None]
  - FALL [None]
  - HAEMATEMESIS [None]
  - IMMOBILE [None]
  - INCORRECT DRUG ADMINISTRATION DURATION [None]
  - MALAISE [None]
  - MUSCLE HAEMORRHAGE [None]
  - RENAL FAILURE [None]
  - RHABDOMYOLYSIS [None]
